FAERS Safety Report 5393715-2 (Version None)
Quarter: 2007Q3

REPORT INFORMATION
  Report Type: 
  Country: None (occurrence: None)
  Receive Date: 20070723
  Receipt Date: 20070718
  Transmission Date: 20080115
  Serious: Yes (Other)
  Sender: FDA-Public Use
  Company Number: AU-AMGEN-US231583

PATIENT
  Sex: Male

DRUGS (13)
  1. CINACALCET [Suspect]
     Indication: HYPERPARATHYROIDISM SECONDARY
     Route: 048
     Dates: start: 20070112, end: 20070530
  2. ARANESP [Concomitant]
     Indication: DIALYSIS
     Route: 042
     Dates: start: 20061013
  3. ALLOPURINOL [Concomitant]
     Route: 065
     Dates: start: 20060220
  4. CARVEDILOL [Concomitant]
     Route: 065
     Dates: start: 20040329
  5. COLCHICINE [Concomitant]
     Route: 065
     Dates: start: 20061211
  6. FOLIC ACID [Concomitant]
     Route: 065
     Dates: start: 20040305
  7. IRON [Concomitant]
     Route: 065
     Dates: start: 20061129
  8. PANTOPRAZOLE SODIUM [Concomitant]
     Route: 065
     Dates: start: 20011029
  9. SODIUM BICARBONATE [Concomitant]
     Route: 065
     Dates: start: 20061009
  10. VALACYCLOVIR HCL [Concomitant]
     Route: 065
     Dates: start: 20060125
  11. VITAMIN B COMPLEX WITH C [Concomitant]
     Route: 065
     Dates: start: 20060228
  12. CALCITRIOL [Concomitant]
     Route: 065
     Dates: start: 20070322
  13. CALTRATE [Concomitant]
     Route: 065
     Dates: start: 20020913

REACTIONS (1)
  - SKIN LESION [None]
